FAERS Safety Report 24652116 (Version 1)
Quarter: 2024Q4

REPORT INFORMATION
  Report Type: Spontaneous
  Country: US (occurrence: None)
  Receive Date: 20241121
  Receipt Date: 20241121
  Transmission Date: 20250115
  Serious: No
  Sender: Public
  Company Number: None

PATIENT
  Age: 67 Year
  Sex: Female
  Weight: 79.38 kg

DRUGS (1)
  1. EVENITY [Suspect]
     Active Substance: ROMOSOZUMAB-AQQG
     Indication: Osteoarthritis
     Dosage: FREQUENCY : MONTHLY;?
     Route: 058
     Dates: start: 202410

REACTIONS (2)
  - Spinal fracture [None]
  - Therapy interrupted [None]
